FAERS Safety Report 7022741-2 (Version None)
Quarter: 2010Q3

REPORT INFORMATION
  Report Type: 
  Country: None (occurrence: None)
  Receive Date: 20100930
  Receipt Date: 20100924
  Transmission Date: 20110219
  Serious: Yes (Other)
  Sender: FDA-Public Use
  Company Number: A0883217A

PATIENT
  Age: 52 Year
  Sex: Female

DRUGS (3)
  1. TYKERB [Suspect]
     Indication: BREAST CANCER
     Dosage: 1250MG PER DAY
     Route: 048
     Dates: start: 20100620
  2. XELODA [Concomitant]
  3. NEXIUM [Concomitant]

REACTIONS (2)
  - DRUG DEPENDENCE [None]
  - HOSPICE CARE [None]
